FAERS Safety Report 4649121-9 (Version None)
Quarter: 2005Q2

REPORT INFORMATION
  Report Type: 
  Country: None (occurrence: None)
  Receive Date: 20050429
  Receipt Date: 20050418
  Transmission Date: 20051028
  Serious: Yes (Other)
  Sender: FDA-Public Use
  Company Number: TZ-GLAXOSMITHKLINE-B0378365A

PATIENT

DRUGS (1)
  1. TRIZIVIR [Suspect]
     Indication: HIV INFECTION
     Dosage: 1TAB TWICE PER DAY

REACTIONS (3)
  - CONFUSIONAL STATE [None]
  - MENINGISM [None]
  - MENINGITIS CRYPTOCOCCAL [None]
